FAERS Safety Report 25873143 (Version 2)
Quarter: 2025Q4

REPORT INFORMATION
  Report Type: Spontaneous
  Country: US (occurrence: US)
  Receive Date: 20251002
  Receipt Date: 20251210
  Transmission Date: 20260118
  Serious: No
  Sender: DR REDDYS
  Company Number: US-DRL-USA-USA/2025/09/014542

PATIENT
  Age: 3 Year
  Sex: Male

DRUGS (1)
  1. CLONIDINE [Suspect]
     Active Substance: CLONIDINE
     Indication: Product used for unknown indication
     Dosage: INSTRUCTED TO ONLY USE ONE HALF OF THE PATCH

REACTIONS (1)
  - Wrong technique in product usage process [Not Recovered/Not Resolved]
